FAERS Safety Report 7532745-9 (Version None)
Quarter: 2011Q2

REPORT INFORMATION
  Report Type: 
  Country: None (occurrence: None)
  Receive Date: 20110608
  Receipt Date: 20110520
  Transmission Date: 20111010
  Serious: Yes (Hospitalization, Congenital Anomaly)
  Sender: FDA-Public Use
  Company Number: A0930498A

PATIENT
  Sex: Male

DRUGS (4)
  1. STEROIDS [Concomitant]
     Route: 064
  2. BENADRYL [Concomitant]
     Route: 064
  3. ATARAX [Concomitant]
     Route: 064
  4. PAXIL [Suspect]
     Route: 064
     Dates: end: 19930601

REACTIONS (3)
  - DRUG EXPOSURE DURING PREGNANCY [None]
  - PATENT DUCTUS ARTERIOSUS [None]
  - CONGENITAL AORTIC STENOSIS [None]
